FAERS Safety Report 20215569 (Version 2)
Quarter: 2022Q1

REPORT INFORMATION
  Report Type: Report from Study
  Country: EG (occurrence: EG)
  Receive Date: 20211222
  Receipt Date: 20220225
  Transmission Date: 20220423
  Serious: Yes (Other)
  Sender: FDA-Public Use
  Company Number: EG-NOVARTISPH-NVSC2021EG286479

PATIENT
  Age: 58 Year
  Sex: Male

DRUGS (8)
  1. ENTRESTO [Suspect]
     Active Substance: SACUBITRIL\VALSARTAN
     Indication: Cardiac failure
     Dosage: 0.5 DOSAGE FORM, BID
     Route: 048
     Dates: start: 20211012
  2. EXAMIDE [Concomitant]
     Indication: Polyuria
     Dosage: 1 DOSAGE FORM, QD(ONCE DAILY BEFORE BREAKFAST )
     Route: 048
     Dates: start: 20210414
  3. EXAMIDE [Concomitant]
     Dosage: 1 DOSAGE FORM(OCCASIONALLY TAKES EXAMIDE 20 MG ONE TABLET WHEN NEEDED)
     Route: 048
  4. CARVEDILOL [Concomitant]
     Active Substance: CARVEDILOL
     Indication: Hypertension
     Dosage: 1 DOSAGE FORM, BID
     Route: 048
     Dates: start: 20201214
  5. VAXATO [Concomitant]
     Indication: Hypercoagulation
     Dosage: 1 DOSAGE FORM, QD(AFTER LUNCH)
     Route: 048
     Dates: start: 20191214
  6. CORDARONE [Concomitant]
     Active Substance: AMIODARONE HYDROCHLORIDE
     Indication: Heart rate irregular
     Dosage: 0.5 DOSAGE FORM, QD
     Route: 048
     Dates: start: 20191214
  7. TAMSULOSIN HYDROCHLORIDE [Concomitant]
     Active Substance: TAMSULOSIN HYDROCHLORIDE
     Indication: Prostatic disorder
     Dosage: 1 DOSAGE FORM, QD(AFTER DINNER)
     Route: 048
     Dates: start: 20201214
  8. TAMSULOSIN HYDROCHLORIDE [Concomitant]
     Active Substance: TAMSULOSIN HYDROCHLORIDE
     Indication: Urinary tract disorder

REACTIONS (7)
  - Renal impairment [Unknown]
  - Oedema peripheral [Not Recovered/Not Resolved]
  - Dyspnoea [Not Recovered/Not Resolved]
  - Insomnia [Not Recovered/Not Resolved]
  - Drug ineffective [Unknown]
  - Blood uric acid decreased [Unknown]
  - Wrong technique in product usage process [Not Recovered/Not Resolved]

NARRATIVE: CASE EVENT DATE: 20211012
